FAERS Safety Report 10251550 (Version 1)
Quarter: 2014Q2

REPORT INFORMATION
  Report Type: Spontaneous
  Country: FR (occurrence: FR)
  Receive Date: 20140623
  Receipt Date: 20140623
  Transmission Date: 20141212
  Serious: Yes (Other)
  Sender: FDA-Public Use
  Company Number: FR-JNJFOC-20140612009

PATIENT
  Sex: Female

DRUGS (2)
  1. XARELTO [Suspect]
     Indication: THROMBOSIS PROPHYLAXIS
     Route: 048
  2. HEPARIN [Concomitant]
     Indication: DEEP VEIN THROMBOSIS
     Route: 065

REACTIONS (3)
  - Haemoglobin decreased [Unknown]
  - Abdominal pain [Unknown]
  - Intra-abdominal haematoma [Unknown]
